FAERS Safety Report 5127532-5 (Version None)
Quarter: 2006Q4

REPORT INFORMATION
  Report Type: 
  Country: None (occurrence: None)
  Receive Date: 20061016
  Receipt Date: 20061010
  Transmission Date: 20070319
  Serious: Yes (Hospitalization)
  Sender: FDA-Public Use
  Company Number: JP-BAYER-200614495GDS

PATIENT
  Age: 83 Year
  Sex: Female

DRUGS (1)
  1. ASPIRIN [Suspect]
     Indication: CEREBRAL INFARCTION
     Route: 065

REACTIONS (4)
  - ASCITES [None]
  - DIVERTICULAR PERFORATION [None]
  - DIVERTICULITIS INTESTINAL HAEMORRHAGIC [None]
  - PURULENCE [None]
